FAERS Safety Report 16644913 (Version 2)
Quarter: 2019Q3

REPORT INFORMATION
  Report Type: Spontaneous
  Country: US (occurrence: US)
  Receive Date: 20190729
  Receipt Date: 20190822
  Transmission Date: 20191004
  Serious: No
  Sender: FDA-Public Use
  Company Number: US-SA-2019SA202516

PATIENT
  Age: 39 Year
  Sex: Female

DRUGS (5)
  1. DESONIDE. [Concomitant]
     Active Substance: DESONIDE
  2. HYDROXYZINE HCL [Concomitant]
     Active Substance: HYDROXYZINE HYDROCHLORIDE
  3. DUPIXENT [Suspect]
     Active Substance: DUPILUMAB
     Indication: DERMATITIS
     Dosage: 300 MG, QOW; DOSE (300MG/2ML)
     Route: 058
     Dates: start: 20180105
  4. DUPIXENT [Suspect]
     Active Substance: DUPILUMAB
     Dosage: 300 MG
     Route: 058
  5. TRIAMCINOLON [TRIAMCINOLONE] [Concomitant]

REACTIONS (2)
  - Dermatitis [Unknown]
  - Product dose omission [Unknown]
